FAERS Safety Report 7399092-X (Version None)
Quarter: 2011Q2

REPORT INFORMATION
  Report Type: 
  Country: None (occurrence: None)
  Receive Date: 20110407
  Receipt Date: 20110309
  Transmission Date: 20111010
  Serious: Yes (Other)
  Sender: FDA-Public Use
  Company Number: US-BAYER-200938804NA

PATIENT
  Sex: Female
  Weight: 75 kg

DRUGS (35)
  1. LASIX [Concomitant]
     Dosage: UNK
     Route: 042
     Dates: start: 20070501
  2. LISINOPRIL [Concomitant]
     Dosage: 10 MG, QD
     Route: 048
     Dates: start: 20070501
  3. TRASYLOL [Suspect]
     Indication: CORONARY ARTERY BYPASS
     Dosage: 6-100CC VIALS
     Route: 042
     Dates: start: 20070508
  4. LANSOPRAZOLE [Concomitant]
     Dosage: 30 MG, QD
     Dates: start: 20070501
  5. VANCOMYCIN [Concomitant]
     Indication: PNEUMONIA
     Dosage: UNK
     Route: 042
     Dates: start: 20070501
  6. UNCODEABLE ^UNCLASSIFIABLE^ [Concomitant]
     Dosage: UNK
     Dates: start: 20070515, end: 20070520
  7. SPIRONOLACTONE [Concomitant]
     Dosage: 25 MG, QD
     Route: 048
     Dates: start: 20070501
  8. GENTAMICIN [Concomitant]
     Dosage: 150 MG, UNK
     Route: 042
     Dates: start: 20070501
  9. CONTRAST MEDIA [Concomitant]
     Dosage: 80 ML, UNK
     Route: 042
     Dates: start: 20070503
  10. CARVEDILOL [Concomitant]
     Dosage: 12.5 MG, BID
     Route: 048
     Dates: start: 20070501
  11. ZOCOR [Concomitant]
     Dosage: 20 MG, QD
     Route: 048
     Dates: start: 20070501
  12. WELLBUTRIN [Concomitant]
     Dosage: 150 MG, BID
     Route: 048
  13. TRAZODONE HCL [Concomitant]
  14. PREVACID [Concomitant]
     Dosage: 30 MG, QD
     Route: 048
     Dates: start: 20070501
  15. ZOLPIDEM [Concomitant]
     Dosage: 5 MG, UNK
     Dates: start: 20070501
  16. IMIPENEM [Concomitant]
     Indication: PNEUMONIA
     Dosage: UNK
     Dates: start: 20070520
  17. NITRIC OXIDE [Concomitant]
     Dosage: INHALED
     Route: 055
     Dates: start: 20070515
  18. FOLIC ACID [Concomitant]
     Dosage: 1 MG, QD
     Dates: start: 20070501
  19. LASIX [Concomitant]
     Dosage: UNK
     Route: 048
     Dates: start: 20070501
  20. ACETYLSALICYLIC ACID SRT [Concomitant]
     Dosage: UNK
     Dates: start: 20070501
  21. CEFEPIME [Concomitant]
     Dosage: 1 G, BID
     Route: 042
     Dates: start: 20070501
  22. TRASYLOL [Suspect]
     Indication: MITRAL VALVE REPLACEMENT
  23. METHADONE [Concomitant]
     Dosage: 28 MG, QD
     Route: 048
     Dates: start: 20070501
  24. ZOCOR [Concomitant]
     Dosage: 80 MG, QD
     Route: 042
     Dates: start: 20070501
  25. NIMBEX [Concomitant]
     Dosage: UNK
     Route: 042
     Dates: start: 20070501
  26. VANCOMYCIN [Concomitant]
     Indication: INFECTION PROPHYLAXIS
     Dosage: UNK
     Dates: start: 20070520
  27. AMIODARONE HCL [Concomitant]
     Dosage: UNK
     Route: 041
     Dates: start: 20070524
  28. HEPARIN [Concomitant]
     Dosage: UNK
     Dates: start: 20070501
  29. THIAMINE [Concomitant]
     Dosage: 100 MG, QD
     Dates: start: 20070501
  30. MILRINONE [Concomitant]
     Dosage: UNK
     Route: 042
     Dates: start: 20070501
  31. PLAVIX [Concomitant]
     Dosage: 75 MG, QD
     Dates: start: 20070501
  32. IMIPENEM [Concomitant]
     Indication: INFECTION PROPHYLAXIS
  33. DOBUTAMINE HCL [Concomitant]
     Dosage: UNK
     Route: 041
     Dates: start: 20070520
  34. VASOPRESSIN AND ANALOGUES [Concomitant]
     Dosage: UNK
     Route: 042
     Dates: start: 20070515, end: 20070520
  35. HYPNOTICS AND SEDATIVES [Concomitant]
     Dosage: UNK
     Dates: end: 20070520

REACTIONS (9)
  - EMOTIONAL DISTRESS [None]
  - STRESS [None]
  - ANXIETY [None]
  - FEAR [None]
  - PAIN [None]
  - RENAL IMPAIRMENT [None]
  - UNEVALUABLE EVENT [None]
  - RENAL INJURY [None]
  - RENAL FAILURE [None]
